FAERS Safety Report 10763038 (Version 1)
Quarter: 2015Q1

REPORT INFORMATION
  Report Type: Spontaneous
  Country: AU (occurrence: AU)
  Receive Date: 20150204
  Receipt Date: 20150204
  Transmission Date: 20150721
  Serious: Yes (Death)
  Sender: FDA-Public Use
  Company Number: AU-MYLANLABS-2015M1003062

PATIENT

DRUGS (4)
  1. NAFARELIN [Suspect]
     Active Substance: NAFARELIN
     Indication: MENORRHAGIA
     Route: 065
  2. WARFARIN [Suspect]
     Active Substance: WARFARIN
     Indication: ANTICOAGULANT THERAPY
     Route: 065
     Dates: start: 200905, end: 200912
  3. TRIMETHOPRIM. [Concomitant]
     Active Substance: TRIMETHOPRIM
     Indication: ESCHERICHIA INFECTION
     Route: 065
  4. NORETHISTERONE [Suspect]
     Active Substance: NORETHINDRONE
     Indication: MENORRHAGIA
     Route: 065

REACTIONS (4)
  - Condition aggravated [Fatal]
  - Antiphospholipid syndrome [Fatal]
  - Multi-organ failure [Fatal]
  - Sudden cardiac death [Fatal]
